FAERS Safety Report 24765560 (Version 1)
Quarter: 2024Q4

REPORT INFORMATION
  Report Type: Spontaneous
  Country: US (occurrence: None)
  Receive Date: 20241221
  Receipt Date: 20241221
  Transmission Date: 20250115
  Serious: Yes (Hospitalization)
  Sender: Public
  Company Number: None

PATIENT
  Sex: Male

DRUGS (11)
  1. TACROLIMUS [Suspect]
     Active Substance: TACROLIMUS
     Indication: Lung transplant
     Dates: start: 20230607
  2. ALBUTEROL SULFATE [Concomitant]
     Active Substance: ALBUTEROL SULFATE
  3. ALENDRONATE [Concomitant]
     Active Substance: ALENDRONATE SODIUM
  4. ALPRAZOLAM TAB 0.5MG [Concomitant]
  5. AMILORIDE TAB5MG [Concomitant]
  6. AMOXICILLIN [Concomitant]
     Active Substance: AMOXICILLIN
  7. ASPIRIN LOW TAB 81 MG EC [Concomitant]
  8. AUGMENTIN TAB SOOMG [Concomitant]
  9. AZITHROMYCIN [Concomitant]
     Active Substance: AZITHROMYCIN
  10. CETIRIZINE HCL [Concomitant]
     Active Substance: CETIRIZINE HYDROCHLORIDE
  11. CLONAZEPAM TAB 0.5MG [Concomitant]

REACTIONS (1)
  - Gastrointestinal stoma complication [None]
